FAERS Safety Report 21531326 (Version 1)
Quarter: 2022Q4

REPORT INFORMATION
  Report Type: Spontaneous
  Country: US (occurrence: None)
  Receive Date: 20221028
  Receipt Date: 20221028
  Transmission Date: 20230113
  Serious: No
  Sender: FDA-Public Use
  Company Number: None

PATIENT
  Age: 59 Year
  Sex: Female

DRUGS (1)
  1. BENZONATATE [Suspect]
     Active Substance: BENZONATATE
     Indication: Antitussive therapy
     Dosage: 100 MG PRN PO?
     Route: 048
     Dates: start: 20220111, end: 20220113

REACTIONS (2)
  - Rash [None]
  - Swelling face [None]

NARRATIVE: CASE EVENT DATE: 20220113
